FAERS Safety Report 19085518 (Version 3)
Quarter: 2021Q2

REPORT INFORMATION
  Report Type: Report from Study
  Country: US (occurrence: US)
  Receive Date: 20210401
  Receipt Date: 20210419
  Transmission Date: 20210717
  Serious: Yes (Other)
  Sender: FDA-Public Use
  Company Number: US-SEATTLE GENETICS-2021SGN00649

PATIENT
  Sex: Female

DRUGS (3)
  1. LETROZOLE. [Concomitant]
     Active Substance: LETROZOLE
  2. LEVETIRACETAM. [Concomitant]
     Active Substance: LEVETIRACETAM
  3. TUCATINIB [Suspect]
     Active Substance: TUCATINIB
     Indication: BREAST CANCER FEMALE

REACTIONS (10)
  - Drug interaction [Unknown]
  - Hypoaesthesia [Unknown]
  - Pain [Unknown]
  - Muscle spasms [Unknown]
  - Nausea [Recovering/Resolving]
  - Seizure [Unknown]
  - Dizziness [Unknown]
  - Fatigue [Unknown]
  - Product use issue [Unknown]
  - Cerebral disorder [Unknown]
